FAERS Safety Report 6242534-3 (Version None)
Quarter: 2009Q2

REPORT INFORMATION
  Report Type: 
  Country: None (occurrence: None)
  Receive Date: 20090622
  Receipt Date: 20090622
  Transmission Date: 20091009
  Serious: No
  Sender: FDA-Public Use
  Company Number: None

PATIENT
  Age: 57 Year
  Sex: Female
  Weight: 66.6788 kg

DRUGS (1)
  1. ZICAM CLD REMEDY GEL SWABS ZINCUM GLUCONICUM 2X MATRIXX INITIATIVES, I [Suspect]
     Indication: NASOPHARYNGITIS
     Dosage: 1 GEL SWAB EVERY 4 HOURS NASAL
     Route: 045
     Dates: start: 20090429, end: 20090501

REACTIONS (3)
  - AGEUSIA [None]
  - ANOSMIA [None]
  - APPLICATION SITE IRRITATION [None]
